FAERS Safety Report 4502722-0 (Version None)
Quarter: 2004Q4

REPORT INFORMATION
  Report Type: 
  Country: None (occurrence: None)
  Receive Date: 20041112
  Receipt Date: 20041104
  Transmission Date: 20050328
  Serious: Yes (Hospitalization)
  Sender: FDA-Public Use
  Company Number: US-JNJFOC--20041007387

PATIENT
  Age: 73 Year
  Sex: Male

DRUGS (2)
  1. EXTRA STRENGTH TYLENOL (ACETAMINOPHEN) GELCAPS [Suspect]
     Indication: MYALGIA
     Dosage: 1000 MG, 1 IN 1 TOTAL, ORAL
     Route: 048
     Dates: start: 20041010, end: 20041010
  2. EXTRA STRENGTH TYLENOL (ACETAMINOPHEN) GELCAPS [Suspect]
     Indication: VIRAL INFECTION
     Dosage: 1000 MG, 1 IN 1 TOTAL, ORAL
     Route: 048
     Dates: start: 20041010, end: 20041010

REACTIONS (5)
  - DIZZINESS [None]
  - HYPOTENSION [None]
  - RASH GENERALISED [None]
  - SYNCOPE [None]
  - URTICARIA [None]
